FAERS Safety Report 8523214-8 (Version None)
Quarter: 2012Q3

REPORT INFORMATION
  Report Type: 
  Country: None (occurrence: None)
  Receive Date: 20120720
  Receipt Date: 20120606
  Transmission Date: 20120928
  Serious: Yes (Other)
  Sender: FDA-Public Use
  Company Number: JP-009507513-2012SP031784

PATIENT

DRUGS (1)
  1. FARESTON [Suspect]
     Indication: BREAST CANCER
     Dosage: 120 MG, QD
     Route: 048
     Dates: start: 20110101

REACTIONS (2)
  - RESPIRATORY FAILURE [None]
  - HEPATIC FUNCTION ABNORMAL [None]
